FAERS Safety Report 23132922 (Version 1)
Quarter: 2023Q4

REPORT INFORMATION
  Report Type: Report from Study
  Country: US (occurrence: US)
  Receive Date: 20231101
  Receipt Date: 20231101
  Transmission Date: 20240110
  Serious: Yes (Other)
  Sender: FDA-Public Use
  Company Number: US-ABBVIE-5390741

PATIENT
  Sex: Female

DRUGS (2)
  1. HUMIRA [Suspect]
     Active Substance: ADALIMUMAB
     Indication: Rheumatoid arthritis
     Dosage: STRENGTH: 40 MG, CF?LAST ADMIN DATE WAS JUN 2016
     Route: 058
     Dates: start: 20160608
  2. HUMIRA [Suspect]
     Active Substance: ADALIMUMAB
     Dosage: FORM STRENGTH: 40 MG, ?CF
     Route: 058
     Dates: start: 20160618

REACTIONS (3)
  - Knee arthroplasty [Recovering/Resolving]
  - Memory impairment [Unknown]
  - Joint stiffness [Not Recovered/Not Resolved]
